FAERS Safety Report 12312290 (Version 7)
Quarter: 2018Q2

REPORT INFORMATION
  Report Type: Report from Study
  Country: BR (occurrence: BR)
  Receive Date: 20160428
  Receipt Date: 20180615
  Transmission Date: 20180711
  Serious: Yes (Hospitalization, Other)
  Sender: FDA-Public Use
  Company Number: PHHY2016BR030531

PATIENT
  Age: 41 Year
  Sex: Female
  Weight: 87 kg

DRUGS (6)
  1. SANDOSTATIN LAR DEPOT [Suspect]
     Active Substance: OCTREOTIDE ACETATE
     Dosage: 30 MG, QMO (1 APPLICATION EVERY 28 DAYS)
     Route: 048
     Dates: end: 201603
  2. SANDOSTATIN LAR DEPOT [Suspect]
     Active Substance: OCTREOTIDE ACETATE
     Dosage: 20 MG, UNK
     Route: 030
  3. PURAN [Concomitant]
     Active Substance: LEVOTHYROXINE SODIUM
     Indication: THYROID HORMONES INCREASED
     Route: 065
  4. SANDOSTATIN LAR DEPOT [Suspect]
     Active Substance: OCTREOTIDE ACETATE
     Dosage: 30 MG, QMO (EVERY 28 DAYS)
     Route: 030
     Dates: start: 201605
  5. SANDOSTATIN LAR DEPOT [Suspect]
     Active Substance: OCTREOTIDE ACETATE
     Indication: ACROMEGALY
     Dosage: 10 MG, UNK
     Route: 030
  6. SANDOSTATIN LAR DEPOT [Suspect]
     Active Substance: OCTREOTIDE ACETATE
     Dosage: 30 MG, QMO (EVERY 28 DAYS)
     Route: 030
     Dates: end: 201602

REACTIONS (14)
  - Abdominal pain [Unknown]
  - Peripheral swelling [Unknown]
  - Muscle spasms [Unknown]
  - Colitis [Unknown]
  - Decreased appetite [Unknown]
  - Syncope [Unknown]
  - Hormone level abnormal [Unknown]
  - Swelling [Unknown]
  - Pain [Recovered/Resolved]
  - Swelling face [Unknown]
  - Thyroid hormones increased [Unknown]
  - Insomnia [Unknown]
  - Cholelithiasis [Recovered/Resolved]
  - Liver function test abnormal [Recovered/Resolved]

NARRATIVE: CASE EVENT DATE: 201602
